FAERS Safety Report 8836765 (Version 2)
Quarter: 2012Q4

REPORT INFORMATION
  Report Type: 
  Country: US (occurrence: US)
  Receive Date: 20121012
  Receipt Date: 20121025
  Transmission Date: 20130627
  Serious: Yes (Life-Threatening, Other)
  Sender: FDA-Public Use
  Company Number: US-UCBSA-068425

PATIENT
  Age: 23 Month
  Sex: Male

DRUGS (1)
  1. METHYLPHENIDATE [Suspect]

REACTIONS (2)
  - Accidental exposure to product by child [Recovered/Resolved]
  - Dystonia [Recovered/Resolved]
